FAERS Safety Report 4506513-6 (Version None)
Quarter: 2004Q4

REPORT INFORMATION
  Report Type: 
  Country: None (occurrence: None)
  Receive Date: 20041122
  Receipt Date: 20040507
  Transmission Date: 20050328
  Serious: Yes (Hospitalization)
  Sender: FDA-Public Use
  Company Number: PT-ABBOTT-04P-130-0260171-01

PATIENT
  Sex: Female
  Weight: 59 kg

DRUGS (13)
  1. HUMIRA [Suspect]
     Indication: RHEUMATOID ARTHRITIS
     Route: 058
     Dates: start: 20030930, end: 20040330
  2. PREDNISONE [Concomitant]
     Indication: RHEUMATOID ARTHRITIS
     Route: 048
     Dates: start: 19940101
  3. METHOTREXATE SODIUM [Concomitant]
     Indication: RHEUMATOID ARTHRITIS
     Route: 048
     Dates: start: 19950217
  4. ARTHROTEC [Concomitant]
     Indication: RHEUMATOID ARTHRITIS
     Route: 048
     Dates: start: 19980822
  5. OMEPRAZOLE [Concomitant]
     Indication: GASTRITIS
     Route: 048
     Dates: start: 20020422
  6. CALCIFEDIOL [Concomitant]
     Indication: OSTEOPOROSIS PROPHYLAXIS
     Dates: start: 19960919
  7. ADALGUNN [Concomitant]
     Indication: ANALGESIC EFFECT
     Dates: start: 20010129
  8. CLONIXIN LYSINATE [Concomitant]
     Indication: PAIN MANAGEMENT
     Route: 048
  9. GLUCOSAMINE SULFATE [Concomitant]
     Indication: OSTEOARTHRITIS
     Dates: start: 20010129
  10. SANDOCAL ^NOVARTIS^ [Concomitant]
     Indication: OSTEOPOROSIS
     Route: 048
     Dates: start: 19970624
  11. SALCAT [Concomitant]
     Indication: DRUG USE FOR UNKNOWN INDICATION
     Route: 055
     Dates: start: 20030205
  12. ACETYLSALICYLIC ACID [Concomitant]
     Indication: TRANSIENT ISCHAEMIC ATTACK
     Route: 048
     Dates: start: 20040424
  13. CLAVULIN [Concomitant]
     Indication: RESPIRATORY TRACT INFECTION
     Dosage: 500/125 MG
     Route: 048
     Dates: start: 20040416, end: 20040423

REACTIONS (5)
  - CONFUSIONAL STATE [None]
  - DYSARTHRIA [None]
  - HEMIPARESIS [None]
  - LUNG INFECTION [None]
  - PYREXIA [None]
